FAERS Safety Report 14424373 (Version 2)
Quarter: 2018Q1

REPORT INFORMATION
  Report Type: Spontaneous
  Country: RO (occurrence: RO)
  Receive Date: 20180123
  Receipt Date: 20180302
  Transmission Date: 20180509
  Serious: Yes (Death, Life-Threatening, Hospitalization, Other)
  Sender: FDA-Public Use
  Company Number: RO-ASTRAZENECA-2018SE08072

PATIENT
  Age: 61 Year
  Sex: Male

DRUGS (16)
  1. CONTROLOC [Concomitant]
     Active Substance: PANTOPRAZOLE SODIUM
     Route: 048
  2. BRILIQUE [Suspect]
     Active Substance: TICAGRELOR
     Route: 048
  3. HEPARIN [Concomitant]
     Active Substance: HEPARIN SODIUM
  4. PRESTARIUM [Concomitant]
     Active Substance: PERINDOPRIL
     Route: 048
  5. MANNITOL. [Concomitant]
     Active Substance: MANNITOL
  6. BRILIQUE [Suspect]
     Active Substance: TICAGRELOR
     Route: 048
     Dates: start: 201712
  7. VEROSPIRON [Concomitant]
     Active Substance: SPIRONOLACTONE
     Route: 048
  8. NITRODERM [Concomitant]
     Active Substance: NITROGLYCERIN
     Route: 048
  9. FUROSEMIDE. [Concomitant]
     Active Substance: FUROSEMIDE
  10. CEFORT [Concomitant]
     Active Substance: CEFTRIAXONE SODIUM
  11. ASPENTER [Concomitant]
     Active Substance: ASPIRIN
  12. ENOXAPARIN [Concomitant]
     Active Substance: ENOXAPARIN
     Route: 058
  13. DOPAMINE [Concomitant]
     Active Substance: DOPAMINE\DOPAMINE HYDROCHLORIDE
  14. SORTIS [Concomitant]
     Active Substance: ATORVASTATIN
     Route: 048
  15. NORADRENALINE [Concomitant]
     Active Substance: NOREPINEPHRINE
     Dosage: 20 MCG/H
  16. SODIUM BICARBONATE. [Concomitant]
     Active Substance: SODIUM BICARBONATE

REACTIONS (12)
  - Acute myocardial infarction [Unknown]
  - Coronary artery thrombosis [Unknown]
  - Degenerative aortic valve disease [Unknown]
  - Mitral valve incompetence [Unknown]
  - Hyperuricaemia [Unknown]
  - Haemorrhagic stroke [Fatal]
  - Coma [Unknown]
  - Iron deficiency anaemia [Unknown]
  - Cardio-respiratory arrest [Unknown]
  - Ischaemic cardiomyopathy [Unknown]
  - Aortic valve incompetence [Unknown]
  - Multiple organ dysfunction syndrome [Fatal]

NARRATIVE: CASE EVENT DATE: 20180105
